FAERS Safety Report 5076093-8 (Version None)
Quarter: 2006Q3

REPORT INFORMATION
  Report Type: 
  Country: None (occurrence: None)
  Receive Date: 20060804
  Receipt Date: 20060727
  Transmission Date: 20061208
  Serious: Yes (Hospitalization)
  Sender: FDA-Public Use
  Company Number: WAES 0607KOR00030

PATIENT

DRUGS (10)
  1. SINGULAIR [Suspect]
     Indication: ASTHMA
     Dosage: 5 MG/DAILY, PO
     Route: 048
     Dates: start: 20050316
  2. ALBUTEROL SULFATE [Concomitant]
  3. AMOXICILLIN [Concomitant]
  4. AMOXICILLIN/CLAVULANATE POTSSIUM [Concomitant]
  5. BAMBUTEROL  HCL [Concomitant]
  6. BUDESONIDE [Concomitant]
  7. ENGLISH IVY [Concomitant]
  8. LACTOBACILLUS ACIDOPHILUS, TYNDALLIZED [Concomitant]
  9. SODIUM CHLORIDE [Concomitant]
  10. THEOPHYLLINE [Concomitant]

REACTIONS (1)
  - DYSPNOEA [None]
